FAERS Safety Report 6837805-3 (Version None)
Quarter: 2010Q3

REPORT INFORMATION
  Report Type: 
  Country: None (occurrence: None)
  Receive Date: 20100713
  Receipt Date: 20070518
  Transmission Date: 20110219
  Serious: No
  Sender: FDA-Public Use
  Company Number: US-PFIZER INC-2007042309

PATIENT
  Sex: Female
  Weight: 90.9 kg

DRUGS (2)
  1. CHANTIX [Suspect]
     Indication: SMOKING CESSATION THERAPY
     Dates: start: 20070401
  2. LOPRESSOR [Concomitant]
     Indication: HYPERTENSION

REACTIONS (3)
  - BACK PAIN [None]
  - MEDICATION ERROR [None]
  - WEIGHT INCREASED [None]
